FAERS Safety Report 7865512-7 (Version None)
Quarter: 2011Q4

REPORT INFORMATION
  Report Type: 
  Country: None (occurrence: None)
  Receive Date: 20111028
  Receipt Date: 20110111
  Transmission Date: 20120403
  Serious: No
  Sender: FDA-Public Use
  Company Number: US-GLAXOSMITHKLINE-A0904967A

PATIENT
  Age: 58 Year
  Sex: Female

DRUGS (6)
  1. MINERAL SUPPLEMENT [Concomitant]
  2. CLONAZEPAM [Concomitant]
  3. VITAMIN TAB [Concomitant]
  4. ADVAIR DISKUS 100/50 [Suspect]
     Indication: CHRONIC OBSTRUCTIVE PULMONARY DISEASE
     Dosage: 1PUFF TWICE PER DAY
     Route: 055
     Dates: start: 20100601
  5. FLUOXETINE HCL [Concomitant]
  6. IBUPROFEN [Concomitant]

REACTIONS (3)
  - ARTHRALGIA [None]
  - DYSPHONIA [None]
  - COUGH [None]
